FAERS Safety Report 15916967 (Version 1)
Quarter: 2019Q1

REPORT INFORMATION
  Report Type: Report from Study
  Country: IT (occurrence: IT)
  Receive Date: 20190205
  Receipt Date: 20190205
  Transmission Date: 20190417
  Serious: Yes (Other)
  Sender: FDA-Public Use
  Company Number: IT-SUN PHARMACEUTICAL INDUSTRIES LTD-2019RR-198213

PATIENT
  Sex: Female

DRUGS (4)
  1. OXALIPLATIN. [Suspect]
     Active Substance: OXALIPLATIN
     Indication: OVARIAN CANCER
     Dosage: 85 MILLIGRAM/SQ. METER, AS A 2-H INFUSION ON DAY 1
     Route: 042
  2. LEUCOVORIN. [Suspect]
     Active Substance: LEUCOVORIN
     Indication: OVARIAN CANCER
     Dosage: 1200 MILLIGRAM/SQ. METER AS A 2-H INFUSION ON DAY 1
     Route: 042
  3. 5-FLUOROURACIL [Suspect]
     Active Substance: FLUOROURACIL
     Dosage: 600 MILLIGRAM/SQ. METER 22-H INFUSION FOR TWO CONSECUTIVE DAYS
     Route: 042
  4. 5-FLUOROURACIL [Suspect]
     Active Substance: FLUOROURACIL
     Indication: OVARIAN CANCER
     Dosage: 400 MILLIGRAM/SQ. METER ON DAY ONE
     Route: 040

REACTIONS (1)
  - Nephropathy toxic [Unknown]
